FAERS Safety Report 5649425-7 (Version None)
Quarter: 2008Q1

REPORT INFORMATION
  Report Type: 
  Country: None (occurrence: None)
  Receive Date: 20080304
  Receipt Date: 20080220
  Transmission Date: 20080703
  Serious: Yes (Hospitalization)
  Sender: FDA-Public Use
  Company Number: DE-BAYER-200710283BVD

PATIENT
  Age: 53 Year
  Sex: Male

DRUGS (6)
  1. SORAFENIB [Suspect]
     Indication: NON-SMALL CELL LUNG CANCER
     Dosage: TOTAL DAILY DOSE: 800 MG  UNIT DOSE: 200 MG
     Route: 048
     Dates: start: 20070120, end: 20070206
  2. SORAFENIB [Suspect]
     Route: 048
     Dates: start: 20070209
  3. PACLITAXEL [Suspect]
     Indication: NON-SMALL CELL LUNG CANCER
     Route: 042
     Dates: start: 20070119, end: 20070119
  4. CARBOPLATIN [Suspect]
     Indication: NON-SMALL CELL LUNG CANCER
     Route: 042
     Dates: start: 20070119, end: 20070119
  5. CARBIMAZOL [Concomitant]
     Indication: HYPERTHYROIDISM
     Route: 065
  6. CARBIMAZOL [Concomitant]
     Route: 065

REACTIONS (1)
  - PANCREATITIS [None]
